FAERS Safety Report 7787220-3 (Version None)
Quarter: 2011Q3

REPORT INFORMATION
  Report Type: 
  Country: None (occurrence: None)
  Receive Date: 20110929
  Receipt Date: 20110919
  Transmission Date: 20111222
  Serious: Yes (Other)
  Sender: FDA-Public Use
  Company Number: US-JNJFOC-20110909088

PATIENT
  Sex: Male

DRUGS (5)
  1. TYLENOL-500 [Suspect]
     Indication: PRODUCT USED FOR UNKNOWN INDICATION
     Route: 065
     Dates: start: 20110914
  2. MOTRIN PM (DIPHENHYDRAMINE CITRATE/IBUPROFEN) [Suspect]
     Indication: SLEEP DISORDER THERAPY
     Route: 048
     Dates: start: 20110916, end: 20110916
  3. TYLENOL-500 [Suspect]
     Route: 065
  4. MOTRIN PM (DIPHENHYDRAMINE CITRATE/IBUPROFEN) [Suspect]
     Route: 048
     Dates: start: 20110916, end: 20110916
  5. MOTRIN PM (DIPHENHYDRAMINE CITRATE/IBUPROFEN) [Suspect]
     Indication: PAIN
     Route: 048
     Dates: start: 20110916, end: 20110916

REACTIONS (1)
  - HAEMATOCHEZIA [None]
